FAERS Safety Report 5694437-0 (Version None)
Quarter: 2008Q2

REPORT INFORMATION
  Report Type: 
  Country: None (occurrence: None)
  Receive Date: 20080404
  Receipt Date: 20080325
  Transmission Date: 20081010
  Serious: Yes (Hospitalization)
  Sender: FDA-Public Use
  Company Number: PHEH2008US03186

PATIENT
  Age: 59 Year
  Sex: Male

DRUGS (9)
  1. LOPRESSOR [Suspect]
  2. COREG [Concomitant]
  3. MIRAPEX [Concomitant]
  4. ZETIA [Concomitant]
  5. ZANTAC [Concomitant]
  6. NEXIUM [Concomitant]
  7. NORVASC [Concomitant]
  8. ASPIRIN [Concomitant]
  9. AMBIEN [Concomitant]

REACTIONS (9)
  - CHEST DISCOMFORT [None]
  - CHEST PAIN [None]
  - COUGH [None]
  - DYSPNOEA [None]
  - HEADACHE [None]
  - HYPERHIDROSIS [None]
  - HYPOAESTHESIA [None]
  - PARAESTHESIA [None]
  - SYNCOPE [None]
